FAERS Safety Report 18626855 (Version 1)
Quarter: 2020Q4

REPORT INFORMATION
  Report Type: Spontaneous
  Country: IR (occurrence: IR)
  Receive Date: 20201217
  Receipt Date: 20201217
  Transmission Date: 20210114
  Serious: Yes (Death, Life-Threatening, Hospitalization, Other)
  Sender: FDA-Public Use
  Company Number: IR-MACLEODS PHARMACEUTICALS US LTD-MAC2020029442

PATIENT

DRUGS (1)
  1. METFORMIN [Suspect]
     Active Substance: METFORMIN HYDROCHLORIDE
     Indication: DIABETES MELLITUS
     Dosage: 100 GRAM, SINGLE
     Route: 065

REACTIONS (9)
  - Intentional overdose [Fatal]
  - Lactic acidosis [Fatal]
  - Confusional state [Unknown]
  - Ventricular septal defect [Unknown]
  - Lethargy [Unknown]
  - Hypotension [Fatal]
  - Completed suicide [Fatal]
  - Toxicity to various agents [Fatal]
  - Cardiac arrest [Fatal]
